FAERS Safety Report 4407837-3 (Version None)
Quarter: 2004Q3

REPORT INFORMATION
  Report Type: 
  Country: None (occurrence: None)
  Receive Date: 20040726
  Receipt Date: 20040713
  Transmission Date: 20050211
  Serious: Yes (Hospitalization)
  Sender: FDA-Public Use
  Company Number: 12542908

PATIENT
  Age: 34 Year
  Sex: Female

DRUGS (4)
  1. LAMIVUDINE [Suspect]
     Indication: HIV INFECTION
     Dosage: 300MG PER DAY
     Route: 048
     Dates: start: 19980831, end: 19991216
  2. STAVUDINE [Suspect]
     Indication: HIV INFECTION
     Dosage: 60MG PER DAY
     Route: 048
     Dates: start: 19980910, end: 19991118
  3. NELFINAVIR MESYLATE [Suspect]
     Indication: HIV INFECTION
     Dosage: 2500MG PER DAY
     Dates: start: 19980910, end: 19991216
  4. ETHAMBUTOL HCL [Suspect]
     Indication: MYCOBACTERIUM AVIUM COMPLEX INFECTION
     Dosage: 500MG PER DAY
     Dates: start: 19981025, end: 19990614

REACTIONS (3)
  - HYPERLACTACIDAEMIA [None]
  - HYPOAESTHESIA [None]
  - VOMITING [None]
